FAERS Safety Report 6978334-6 (Version None)
Quarter: 2010Q3

REPORT INFORMATION
  Report Type: 
  Country: None (occurrence: None)
  Receive Date: 20100908
  Receipt Date: 20100824
  Transmission Date: 20110219
  Serious: Yes (Death, Other)
  Sender: FDA-Public Use
  Company Number: 010810

PATIENT
  Age: 28 Year

DRUGS (3)
  1. BUSULFEX [Suspect]
     Indication: STEM CELL TRANSPLANT
     Dosage: 2 MG/KG, BID,
  2. FLUDARABINE PHOSPHATE [Concomitant]
  3. ANTI-THYMOCYTE GLOBULIN NOS [Concomitant]

REACTIONS (2)
  - HYPERCALCAEMIA [None]
  - SEPSIS [None]
